FAERS Safety Report 4623087-X (Version None)
Quarter: 2005Q1

REPORT INFORMATION
  Report Type: 
  Country: None (occurrence: None)
  Receive Date: 20050328
  Receipt Date: 20050328
  Transmission Date: 20050727
  Serious: Yes (Death)
  Sender: FDA-Public Use
  Company Number: None

PATIENT
  Age: 43 Year
  Sex: Female
  Weight: 63.5036 kg

DRUGS (8)
  1. SUBOXONE [Suspect]
     Indication: DRUG DEPENDENCE
     Dates: start: 20030621, end: 20030627
  2. PROZAC [Concomitant]
  3. NEURONTIN [Concomitant]
  4. FLUOXETINE [Concomitant]
  5. ALPRAZOLAM [Concomitant]
  6. ZYPREXA [Concomitant]
  7. TRAZADONE [Concomitant]
  8. VENTOLIN HFA [Concomitant]

REACTIONS (1)
  - DEATH [None]
